FAERS Safety Report 25980953 (Version 1)
Quarter: 2025Q4

REPORT INFORMATION
  Report Type: Report from Study
  Country: US (occurrence: US)
  Receive Date: 20251030
  Receipt Date: 20251030
  Transmission Date: 20260118
  Serious: Yes (Other)
  Sender: ABBVIE
  Company Number: US-ABBVIE-6524455

PATIENT
  Sex: Female

DRUGS (1)
  1. VRAYLAR [Suspect]
     Active Substance: CARIPRAZINE
     Indication: Product used for unknown indication
     Route: 048

REACTIONS (5)
  - Cerebral haemorrhage [Unknown]
  - Head injury [Recovering/Resolving]
  - Haematoma [Unknown]
  - Fall [Unknown]
  - Amnesia [Recovering/Resolving]
